FAERS Safety Report 23024167 (Version 9)
Quarter: 2024Q1

REPORT INFORMATION
  Report Type: Spontaneous
  Country: ES (occurrence: ES)
  Receive Date: 20231004
  Receipt Date: 20240304
  Transmission Date: 20240410
  Serious: Yes (Life-Threatening, Other)
  Sender: FDA-Public Use
  Company Number: ES-PFIZER INC-PV202300154588

PATIENT
  Age: 34 Year
  Sex: Male

DRUGS (42)
  1. DOXORUBICIN [Suspect]
     Active Substance: DOXORUBICIN
     Indication: Desmoplastic small round cell tumour
     Dosage: FIVE CYCLES (VDC)
     Route: 065
     Dates: start: 2018
  2. DOXORUBICIN [Suspect]
     Active Substance: DOXORUBICIN
     Indication: Metastases to peritoneum
     Dosage: 25 MILLIGRAM/SQ. METER, CYCLICAL
     Route: 065
     Dates: start: 20180808
  3. DOXORUBICIN [Suspect]
     Active Substance: DOXORUBICIN
     Indication: Metastases to liver
     Dosage: 75 MILLIGRAM/SQ. METER, CYCLICAL
     Route: 065
     Dates: start: 20180808
  4. DOCETAXEL [Suspect]
     Active Substance: DOCETAXEL\DOCETAXEL ANHYDROUS
     Indication: Desmoplastic small round cell tumour
     Dosage: 75 MG/M2 (DAY 8 EVERY 21 DAYS (SIXTH LINE))
     Route: 065
     Dates: start: 202107, end: 202112
  5. DOCETAXEL [Suspect]
     Active Substance: DOCETAXEL\DOCETAXEL ANHYDROUS
     Indication: Metastases to liver
  6. DOCETAXEL [Suspect]
     Active Substance: DOCETAXEL\DOCETAXEL ANHYDROUS
     Indication: Metastases to peritoneum
  7. GEMCITABINE [Suspect]
     Active Substance: GEMCITABINE
     Indication: Desmoplastic small round cell tumour
     Dosage: 900 MG/M2 (DAYS 1 AND 8 (SIXTH LINE)
     Route: 065
     Dates: start: 202107, end: 202112
  8. GEMCITABINE [Suspect]
     Active Substance: GEMCITABINE
     Indication: Metastases to peritoneum
  9. GEMCITABINE [Suspect]
     Active Substance: GEMCITABINE
     Indication: Metastases to liver
  10. IRINOTECAN [Suspect]
     Active Substance: IRINOTECAN
     Indication: Desmoplastic small round cell tumour
     Dosage: 20 MG/M2 D1-5 (SECOND LINE)
     Route: 065
     Dates: start: 201404
  11. IRINOTECAN [Suspect]
     Active Substance: IRINOTECAN
     Indication: Metastases to peritoneum
     Dosage: UNK, DAY 15
     Route: 065
     Dates: start: 201904
  12. IRINOTECAN [Suspect]
     Active Substance: IRINOTECAN
     Indication: Metastases to liver
  13. VINORELBINE [Suspect]
     Active Substance: VINORELBINE TARTRATE
     Indication: Desmoplastic small round cell tumour
     Dosage: 25 MG/M2, DAILY (ON DAYS 1 AND 8)
     Route: 065
     Dates: start: 20211228, end: 20220313
  14. VINORELBINE [Suspect]
     Active Substance: VINORELBINE TARTRATE
     Indication: Off label use
  15. CYCLOPHOSPHAMIDE [Suspect]
     Active Substance: CYCLOPHOSPHAMIDE
     Indication: Desmoplastic small round cell tumour
     Dosage: 2100 MG/M2, D1-2 EVERY 3 WEEKS
     Route: 065
     Dates: start: 20180808
  16. CYCLOPHOSPHAMIDE [Suspect]
     Active Substance: CYCLOPHOSPHAMIDE
     Indication: Metastases to liver
     Dosage: 4200 MILLIGRAM/SQ. METER, CYCLICAL D1-2 EVERY 3 WEEKS
     Route: 065
     Dates: start: 20180808
  17. CYCLOPHOSPHAMIDE [Suspect]
     Active Substance: CYCLOPHOSPHAMIDE
     Indication: Metastases to peritoneum
     Dosage: FIVE CYCLES (VDC)
     Route: 065
     Dates: start: 2018
  18. CYCLOPHOSPHAMIDE [Suspect]
     Active Substance: CYCLOPHOSPHAMIDE
     Dosage: 250 MILLIGRAM/SQ. METER, ONCE A DAY DAYS 1-5, EVERY 3 WEEKS
     Route: 065
     Dates: start: 202103
  19. CYCLOPHOSPHAMIDE [Suspect]
     Active Substance: CYCLOPHOSPHAMIDE
     Dosage: 25 MILLIGRAM/SQ. METER (D1-28) EVERY 28 DAYS WERE ADMINISTERED AS THE SEVENTH LINE OF TREATMENT
     Route: 048
     Dates: start: 20211228, end: 20220313
  20. ETOPOSIDE [Suspect]
     Active Substance: ETOPOSIDE
     Indication: Desmoplastic small round cell tumour
     Dosage: P6 PROTOCOL (SEVEN CYCLES)
     Route: 065
     Dates: start: 201808
  21. ETOPOSIDE [Suspect]
     Active Substance: ETOPOSIDE
     Dosage: 1.8 MILLIGRAM/SQ. METER, CYCLICAL D1-5 EVERY 3 WEEKS (IE)
     Route: 065
     Dates: start: 201902
  22. IFOSFAMIDE [Suspect]
     Active Substance: IFOSFAMIDE
     Indication: Desmoplastic small round cell tumour
     Dosage: P6 PROTOCOL (SEVEN CYCLES)
     Route: 065
     Dates: start: 201808
  23. IFOSFAMIDE [Suspect]
     Active Substance: IFOSFAMIDE
     Dosage: 100 MG/M2, CCLIC
     Route: 065
     Dates: start: 201902
  24. IFOSFAMIDE [Suspect]
     Active Substance: IFOSFAMIDE
     Dosage: UNK (HIGH DOSE)
     Route: 065
     Dates: start: 2022
  25. VINCRISTINE [Suspect]
     Active Substance: VINCRISTINE
     Indication: Desmoplastic small round cell tumour
     Dosage: FIVE CYCLES
     Route: 065
     Dates: start: 2018
  26. VINCRISTINE [Suspect]
     Active Substance: VINCRISTINE
     Indication: Metastases to peritoneum
     Dosage: 2.01 MILLIGRAM/SQ. METER, CYCLICAL
     Route: 065
     Dates: start: 20180808
  27. VINCRISTINE [Suspect]
     Active Substance: VINCRISTINE
     Indication: Metastases to liver
     Dosage: 0.67 MILLIGRAM/SQ. METER, CYCLICAL
     Route: 065
     Dates: start: 20180808
  28. VINCRISTINE [Suspect]
     Active Substance: VINCRISTINE
     Dosage: UNK (UNK DAY 1-3)
     Route: 065
     Dates: start: 20180808
  29. TEMOZOLOMIDE [Suspect]
     Active Substance: TEMOZOLOMIDE
     Indication: Desmoplastic small round cell tumour
     Dosage: 100 MG/M2 D1-5 EVERY 21 DAYS (SECOND LINE)
     Route: 065
     Dates: start: 201904
  30. TEMOZOLOMIDE [Suspect]
     Active Substance: TEMOZOLOMIDE
     Indication: Metastases to liver
  31. TEMOZOLOMIDE [Suspect]
     Active Substance: TEMOZOLOMIDE
     Indication: Metastases to peritoneum
  32. TOPOTECAN [Suspect]
     Active Substance: TOPOTECAN HYDROCHLORIDE
     Indication: Desmoplastic small round cell tumour
     Dosage: 0.75 MG/M2, ONCE A DAY EVERY 3 WEEKS (UNK PER DAY (D 1-5))
     Route: 065
     Dates: start: 202103
  33. TRABECTEDIN [Suspect]
     Active Substance: TRABECTEDIN
     Indication: Desmoplastic small round cell tumour
     Dosage: NINE CYCLES OF TRABECTEDIN UNTIL MARCH 2020
     Route: 065
  34. TRABECTEDIN [Suspect]
     Active Substance: TRABECTEDIN
     Dosage: CONTINUE WITH 4-WEEK INTERVALS
     Route: 065
  35. TRABECTEDIN [Suspect]
     Active Substance: TRABECTEDIN
     Dosage: 1.2 MG/M2 FOR SECOND CYCLE DECREASED ONE LEVEL TO
     Route: 065
  36. TRABECTEDIN [Suspect]
     Active Substance: TRABECTEDIN
     Dosage: 1 MG/M2 (DOSE REDUCED BY ANOTHER LEVEL)
     Route: 065
  37. TRABECTEDIN [Suspect]
     Active Substance: TRABECTEDIN
     Dosage: 1.5 MG/M2 (NINE CYCLES (THIRD LINE))
     Route: 065
     Dates: start: 201907
  38. PAZOPANIB [Suspect]
     Active Substance: PAZOPANIB
     Indication: Desmoplastic small round cell tumour
     Dosage: 800 MILLIGRAM, ONCE A DAY
     Route: 065
  39. PEGFILGRASTIM [Concomitant]
     Active Substance: PEGFILGRASTIM
     Indication: Desmoplastic small round cell tumour
     Dosage: UNK CONTINUE WITH 4-WEEK INTERVALS
     Route: 065
  40. FILGRASTIM [Concomitant]
     Active Substance: FILGRASTIM
     Indication: Product used for unknown indication
     Dosage: UNK (RECOMBINANT HUMAN)
     Route: 065
  41. GRANULOCYTE COLONY-STIMULATING FACTOR NOS [Concomitant]
     Active Substance: GRANULOCYTE COLONY-STIMULATING FACTOR NOS
     Indication: Desmoplastic small round cell tumour
     Dosage: UNK (RECOMBINANT HUMAN)
     Route: 065
  42. GRANULOCYTE COLONY-STIMULATING FACTOR NOS [Concomitant]
     Active Substance: GRANULOCYTE COLONY-STIMULATING FACTOR NOS
     Dosage: UNK (INCREASED FOR 7 DAYS)
     Route: 065

REACTIONS (9)
  - Febrile neutropenia [Unknown]
  - Thrombocytopenia [Unknown]
  - Haematotoxicity [Unknown]
  - Disease recurrence [Unknown]
  - Desmoplastic small round cell tumour [Unknown]
  - Biliary sepsis [Unknown]
  - Neoplasm progression [Unknown]
  - Off label use [Unknown]
  - Product use in unapproved indication [Unknown]

NARRATIVE: CASE EVENT DATE: 20180101
